FAERS Safety Report 13588665 (Version 3)
Quarter: 2018Q2

REPORT INFORMATION
  Report Type: Spontaneous
  Country: AU (occurrence: AU)
  Receive Date: 20170529
  Receipt Date: 20180425
  Transmission Date: 20180711
  Serious: Yes (Hospitalization, Other)
  Sender: FDA-Public Use
  Company Number: AU-PFIZER INC-2017154016

PATIENT
  Age: 81 Year
  Sex: Male

DRUGS (9)
  1. OLANZAPINE. [Suspect]
     Active Substance: OLANZAPINE
     Dosage: 20 MG, DAILY
     Dates: end: 2017
  2. COLOXYL WITH SENNA [Concomitant]
     Active Substance: DOCUSATE\SENNOSIDES
     Dosage: 2 DF, DAILY
  3. CLOPINE [Suspect]
     Active Substance: CLOZAPINE
     Dosage: UNK
     Route: 048
     Dates: start: 2017
  4. CLOPINE [Suspect]
     Active Substance: CLOZAPINE
     Dosage: 150 MG, DAILY (50 MG IN THE MORNING, AND 100 MG AT NIGHT)
     Route: 048
     Dates: start: 20170405, end: 20170405
  5. AMLODIPINE BESILATE [Suspect]
     Active Substance: AMLODIPINE BESYLATE
     Indication: HYPERTENSION
     Dosage: 5 MG, 1X/DAY (IN THE MORNING)
     Dates: end: 20170403
  6. CHOLECALCIFEROL [Concomitant]
     Active Substance: CHOLECALCIFEROL
     Dosage: 1000 IU, DAILY
  7. THYROXINE [Concomitant]
     Active Substance: LEVOTHYROXINE
     Dosage: 125 UG, DAILY
  8. CLOPINE [Suspect]
     Active Substance: CLOZAPINE
     Indication: PSYCHOTIC DISORDER
     Dosage: UNK
     Route: 048
     Dates: start: 20170320, end: 20170404
  9. FERROGRAD C [Concomitant]
     Active Substance: ASCORBIC ACID\FERROUS SULFATE
     Dosage: 1 DF, DAILY

REACTIONS (12)
  - Salivary hypersecretion [Unknown]
  - Orthostatic hypotension [Unknown]
  - Oedema [Unknown]
  - Hyponatraemia [Unknown]
  - Somnolence [Unknown]
  - Chest pain [Unknown]
  - Conjunctivitis [Unknown]
  - Neuroleptic malignant syndrome [Recovered/Resolved]
  - Overdose [Unknown]
  - Cough [Unknown]
  - Myocarditis [Unknown]
  - Pleural effusion [Unknown]

NARRATIVE: CASE EVENT DATE: 2017
